FAERS Safety Report 5581422-2 (Version None)
Quarter: 2008Q1

REPORT INFORMATION
  Report Type: 
  Country: None (occurrence: None)
  Receive Date: 20080102
  Receipt Date: 20080102
  Transmission Date: 20080703
  Serious: No
  Sender: FDA-Public Use
  Company Number: None

PATIENT
  Age: 47 Year
  Sex: Female

DRUGS (2)
  1. PAROXETINE [Suspect]
     Indication: ANXIETY
     Dosage: 20 PO DAILY
     Route: 048
     Dates: start: 20040701
  2. CITALOPRAM [Suspect]
     Indication: ANXIETY
     Dosage: 20 PO DAILY
     Route: 048
     Dates: start: 20040701

REACTIONS (4)
  - DIARRHOEA [None]
  - DISTURBANCE IN ATTENTION [None]
  - FATIGUE [None]
  - SOMNOLENCE [None]
